FAERS Safety Report 18622578 (Version 1)
Quarter: 2020Q4

REPORT INFORMATION
  Report Type: Spontaneous
  Country: US (occurrence: US)
  Receive Date: 20201216
  Receipt Date: 20201216
  Transmission Date: 20210114
  Serious: Yes (Hospitalization)
  Sender: FDA-Public Use
  Company Number: None

PATIENT
  Age: 60 Year
  Sex: Male
  Weight: 151.2 kg

DRUGS (1)
  1. BAMLANIVIMAB. [Suspect]
     Active Substance: BAMLANIVIMAB
     Indication: COVID-19
     Dosage: ?          OTHER FREQUENCY:ONE TIME;?
     Route: 042
     Dates: start: 20201211, end: 20201211

REACTIONS (6)
  - Condition aggravated [None]
  - Intentional product use issue [None]
  - Confusional state [None]
  - Paraesthesia oral [None]
  - Hypoaesthesia [None]
  - Pneumonia bacterial [None]

NARRATIVE: CASE EVENT DATE: 20201211
